FAERS Safety Report 5153225-4 (Version None)
Quarter: 2006Q4

REPORT INFORMATION
  Report Type: 
  Country: None (occurrence: None)
  Receive Date: 20061117
  Receipt Date: 20061106
  Transmission Date: 20070319
  Serious: Yes (Hospitalization)
  Sender: FDA-Public Use
  Company Number: 2006SE05985

PATIENT
  Age: 855 Month
  Sex: Female

DRUGS (3)
  1. ATACAND HCT [Suspect]
     Indication: HYPERTENSION
     Route: 048
     Dates: start: 20060101, end: 20061030
  2. SELO-ZOK [Suspect]
     Indication: HYPERTENSION
     Route: 048
     Dates: start: 20060801, end: 20060901
  3. LEVAXIN [Concomitant]
     Indication: HYPOTHYROIDISM
     Route: 048

REACTIONS (7)
  - ASTHENIA [None]
  - CHEST PAIN [None]
  - GLOSSODYNIA [None]
  - HEADACHE [None]
  - PRURITUS [None]
  - RASH [None]
  - URTICARIA [None]
